FAERS Safety Report 7309666-X (Version None)
Quarter: 2011Q1

REPORT INFORMATION
  Report Type: 
  Country: None (occurrence: None)
  Receive Date: 20110224
  Receipt Date: 20110211
  Transmission Date: 20110831
  Serious: Yes (Hospitalization, Other)
  Sender: FDA-Public Use
  Company Number: US-BIOGENIDEC-2011BI001000

PATIENT
  Age: 53 Year
  Sex: Female

DRUGS (1)
  1. TYSABRI [Suspect]
     Indication: MULTIPLE SCLEROSIS
     Route: 042
     Dates: start: 20070319, end: 20101119

REACTIONS (5)
  - STRESS [None]
  - LOSS OF CONSCIOUSNESS [None]
  - AUTOIMMUNE HEPATITIS [None]
  - MUSCLE TIGHTNESS [None]
  - DEHYDRATION [None]
